FAERS Safety Report 9167810 (Version 1)
Quarter: 2013Q1

REPORT INFORMATION
  Report Type: Spontaneous
  Country: GB (occurrence: None)
  Receive Date: 20130305
  Receipt Date: 20130305
  Transmission Date: 20140127
  Serious: Yes (Hospitalization)
  Sender: FDA-Public Use
  Company Number: 1614994

PATIENT
  Age: 45 Year
  Sex: Female
  Weight: 22.68 kg

DRUGS (6)
  1. CYTARABINE [Suspect]
     Indication: ACUTE MYELOID LEUKAEMIA
     Dosage: 150 MG  (2 DAY)  INTRAVENOUS (NOT OTHERWISE SPECIFIED)?01/16/2013 - 01/25/2013 (9 DAYS)
     Route: 042
     Dates: start: 20130116, end: 20130125
  2. (ACICLOVIR) [Concomitant]
  3. (ALLOPURINOL) [Concomitant]
  4. (ONDANSETRON) [Concomitant]
  5. (MEROPENEM) [Concomitant]
  6. (VANCOMYCIN) [Concomitant]

REACTIONS (3)
  - Folliculitis [None]
  - Rash maculo-papular [None]
  - Rash pruritic [None]
